FAERS Safety Report 10041069 (Version 2)
Quarter: 2014Q2

REPORT INFORMATION
  Report Type: Spontaneous
  Country: US (occurrence: US)
  Receive Date: 20140327
  Receipt Date: 20140620
  Transmission Date: 20141212
  Serious: Yes (Death)
  Sender: FDA-Public Use
  Company Number: US-PFIZER INC-2014085962

PATIENT
  Age: 42 Year
  Sex: Male

DRUGS (12)
  1. XALKORI [Suspect]
     Indication: LUNG ADENOCARCINOMA METASTATIC
     Dosage: 500 MG, UNK
     Route: 048
     Dates: start: 20140205
  2. XALKORI [Suspect]
     Dosage: 250 MG, 2X/DAY
     Route: 048
     Dates: start: 20140207, end: 20140217
  3. LOVENOX [Concomitant]
     Dosage: 0.4 ML, DAILY (40 MG/0.4 ML, 0.4 MILLILITER (40 MG))
     Route: 058
  4. NORCO [Concomitant]
     Indication: PAIN
     Dosage: 10 MG-325 MG, AS NEEDED, TAKE 1 TABLET EVERY 4-6 HOURS AS NEEDED
     Route: 048
  5. NORCO [Concomitant]
     Dosage: 10 MG-325 MG, AS NEEDED, TAKE 1-2 TABLET EVERY 4-6 HOURS AS NEEDED
  6. COLACE [Concomitant]
     Dosage: 100 MG, AS NEEDED, TAKE 1 CAPSULE (100 MG) EVERY DAY AT BEDTIME AS NEEDED
     Route: 048
  7. LEXAPRO [Concomitant]
     Dosage: 10 MG, DAILY (TAKE 1 TABLET (10 MG) EVERY DAY)
     Route: 048
  8. VALIUM [Concomitant]
     Dosage: 5 MG, 3X/DAY (TAKE 1 TABLET (5 MG) EVERY 8 HOURS)
     Route: 048
  9. METOPROLOL SUCCINATE [Concomitant]
     Dosage: 25 MG, DAILY (TAKE 1 TABLET (25 MG) EVERY DAY)
     Route: 048
  10. REGLAN [Concomitant]
     Dosage: 10 MG, 4X/DAY (TAKE 1 TABLET (10 MG) 4 TIMES EVERY DAY 30 MINUTES BEFORE MEALS AND AT BEDTIME)
     Route: 048
  11. MS CONTIN [Concomitant]
     Dosage: 60 MG, 2X/DAY (TAKE 1 TABLET (60 MG) EVERY 12 HOURS)
     Route: 048
  12. ZOFRAN [Concomitant]
     Dosage: 8 MG, 3X/DAY (TAKE 1 TABLET (8 MG) 3 TIMES EVERY DAY)
     Route: 048

REACTIONS (2)
  - Disease progression [Fatal]
  - Lung adenocarcinoma metastatic [Fatal]
